FAERS Safety Report 5230253-1 (Version None)
Quarter: 2007Q1

REPORT INFORMATION
  Report Type: 
  Country: None (occurrence: None)
  Receive Date: 20070206
  Receipt Date: 20061024
  Transmission Date: 20070707
  Serious: No
  Sender: FDA-Public Use
  Company Number: US-GLAXOSMITHKLINE-A0624773A

PATIENT
  Age: 32 Year
  Sex: Female

DRUGS (2)
  1. PAXIL CR [Suspect]
     Indication: DEPRESSION
     Dosage: 12.5MG PER DAY
     Route: 048
     Dates: start: 20061019
  2. ALPRAZOLAM [Concomitant]

REACTIONS (3)
  - DIZZINESS [None]
  - ELECTRIC SHOCK [None]
  - HEADACHE [None]
